FAERS Safety Report 20711581 (Version 2)
Quarter: 2022Q2

REPORT INFORMATION
  Report Type: Spontaneous
  Country: JP (occurrence: JP)
  Receive Date: 20220414
  Receipt Date: 20220421
  Transmission Date: 20220720
  Serious: Yes (Death, Other)
  Sender: FDA-Public Use
  Company Number: JP-GILEAD-2022-0576979

PATIENT
  Age: 95 Year
  Sex: Female

DRUGS (16)
  1. VEKLURY [Suspect]
     Active Substance: REMDESIVIR
     Indication: COVID-19
     Dosage: 200 MG, QD
     Route: 041
     Dates: start: 20220321, end: 20220321
  2. VEKLURY [Suspect]
     Active Substance: REMDESIVIR
     Dosage: 100 MG, QD
     Route: 041
     Dates: start: 20220322, end: 20220325
  3. AMPICILLIN SODIUM\SULBACTAM SODIUM [Suspect]
     Active Substance: AMPICILLIN SODIUM\SULBACTAM SODIUM
     Indication: Pneumonia aspiration
     Dosage: 3 G, BID
     Route: 041
     Dates: start: 20220321, end: 20220325
  4. SOTROVIMAB [Concomitant]
     Active Substance: SOTROVIMAB
     Indication: COVID-19
     Dosage: 500 MG, QD
     Route: 041
     Dates: start: 20220320, end: 20220320
  5. SODIUM CHLORIDE [Concomitant]
     Active Substance: SODIUM CHLORIDE
     Indication: Pneumonia aspiration
     Dosage: 100 ML, BID
     Route: 041
     Dates: start: 20220321, end: 20220325
  6. HEPARIN [Concomitant]
     Active Substance: HEPARIN SODIUM
     Indication: Thrombosis prophylaxis
     Dosage: 10000 IU, QD
     Route: 041
     Dates: start: 20220321, end: 20220330
  7. DEXTROSE\SODIUM CHLORIDE\SODIUM LACTATE [Concomitant]
     Active Substance: DEXTROSE\SODIUM CHLORIDE\SODIUM LACTATE
     Indication: Thrombosis prophylaxis
     Dosage: 200 ML, QD
     Route: 041
     Dates: start: 20220321, end: 20220330
  8. AMINO ACIDS\DEXTROSE\ELECTROLYTES NOS\VITAMINS [Concomitant]
     Active Substance: AMINO ACIDS\DEXTROSE\ELECTROLYTES NOS\VITAMINS
     Indication: Nutritional supplementation
     Dosage: 1 L, QD
     Route: 041
     Dates: start: 20220321, end: 20220323
  9. AMINO ACIDS\DEXTROSE\ELECTROLYTES NOS\VITAMINS [Concomitant]
     Active Substance: AMINO ACIDS\DEXTROSE\ELECTROLYTES NOS\VITAMINS
     Indication: Nutritional supplementation
     Dosage: 500 ML, QD
     Route: 041
     Dates: start: 20220324, end: 20220330
  10. VITAMINS [Concomitant]
     Active Substance: VITAMINS
     Indication: Nutritional supplementation
     Dosage: 1 DOSAGE FORM, QD
     Route: 041
     Dates: start: 20220324, end: 20220330
  11. FUROSEMIDE [Concomitant]
     Active Substance: FUROSEMIDE
     Indication: Cardiac failure
     Dosage: 10 MG, QD
     Route: 042
     Dates: start: 20220323, end: 20220325
  12. FUROSEMIDE [Concomitant]
     Active Substance: FUROSEMIDE
     Dosage: 10 MG, QD
     Route: 042
     Dates: start: 20220328, end: 20220330
  13. ELECTROLYTES NOS [Concomitant]
     Active Substance: ELECTROLYTES NOS
     Indication: Nutritional supplementation
     Dosage: 500 ML, QD
     Route: 041
     Dates: start: 20220328, end: 20220329
  14. KCL CORRECTIVE [Concomitant]
     Indication: Hypokalaemia
     Dosage: 10 MEQ, QD
     Route: 041
     Dates: start: 20220326, end: 20220328
  15. NITRODERM [Concomitant]
     Active Substance: NITROGLYCERIN
     Indication: Angina pectoris
     Dosage: 1 DOSAGE FORM, QD
     Route: 062
     Dates: end: 20220330
  16. ASPIRIN [Concomitant]
     Active Substance: ASPIRIN
     Indication: Myocardial infarction
     Dosage: 100 MG, QD
     Route: 048
     Dates: end: 20220330

REACTIONS (2)
  - Hepatic function abnormal [Fatal]
  - Cardiac failure [Fatal]

NARRATIVE: CASE EVENT DATE: 20220326
